FAERS Safety Report 15129426 (Version 1)
Quarter: 2018Q3

REPORT INFORMATION
  Report Type: Spontaneous
  Country: US (occurrence: US)
  Receive Date: 20180615
  Receipt Date: 20180615
  Transmission Date: 20181010
  Serious: Yes (Death)
  Sender: FDA-Public Use
  Company Number: None

PATIENT
  Age: 79 Year
  Sex: Male

DRUGS (6)
  1. SPIRONOLACT [Concomitant]
     Active Substance: SPIRONOLACTONE
  2. SERTRALINE [Concomitant]
     Active Substance: SERTRALINE HYDROCHLORIDE
  3. ESBRIET [Suspect]
     Active Substance: PIRFENIDONE
     Indication: PULMONARY HYPERTENSION
     Route: 048
     Dates: start: 20160602
  4. LORAZEPAM. [Concomitant]
     Active Substance: LORAZEPAM
  5. FEUROSEMIDE [Concomitant]
  6. DIGOX [Concomitant]
     Active Substance: DIGOXIN

REACTIONS (1)
  - Death [None]
